FAERS Safety Report 18510290 (Version 1)
Quarter: 2020Q4

REPORT INFORMATION
  Report Type: Spontaneous
  Country: US (occurrence: US)
  Receive Date: 20201117
  Receipt Date: 20201117
  Transmission Date: 20210114
  Serious: No
  Sender: FDA-Public Use
  Company Number: US-ENCUBE-000010

PATIENT
  Age: 79 Year
  Sex: Female

DRUGS (1)
  1. CLOBETASOL PROPIONATE. [Suspect]
     Active Substance: CLOBETASOL PROPIONATE
     Indication: PRODUCT USED FOR UNKNOWN INDICATION
     Dosage: 0.05% OINTMENT, AS A THIN LAYER, TWICE A DAY, APPLIED ON HAND.
     Route: 061

REACTIONS (4)
  - Skin burning sensation [Unknown]
  - Erythema [Unknown]
  - Pain of skin [Unknown]
  - Skin swelling [Unknown]
